FAERS Safety Report 19477304 (Version 1)
Quarter: 2021Q2

REPORT INFORMATION
  Report Type: Spontaneous
  Country: US (occurrence: US)
  Receive Date: 20210630
  Receipt Date: 20210630
  Transmission Date: 20210717
  Serious: Yes (Disabling, Other)
  Sender: FDA-Public Use
  Company Number: US-BAYER-2021-163701

PATIENT
  Sex: Female

DRUGS (1)
  1. BETASERON [Suspect]
     Active Substance: INTERFERON BETA-1B
     Indication: MULTIPLE SCLEROSIS
     Dosage: UNK

REACTIONS (6)
  - Multiple sclerosis [Unknown]
  - Fall [Unknown]
  - Pain [None]
  - Injection site pain [Recovered/Resolved]
  - Therapeutic product effect decreased [None]
  - Injection site bruising [Recovered/Resolved]
